FAERS Safety Report 16854343 (Version 1)
Quarter: 2019Q3

REPORT INFORMATION
  Report Type: Spontaneous
  Country: US (occurrence: US)
  Receive Date: 20190805
  Receipt Date: 20190805
  Transmission Date: 20191005
  Serious: No
  Sender: FDA-Public Use
  Company Number: None

PATIENT
  Age: 61 Year
  Sex: Female

DRUGS (4)
  1. GABAPENTIN. [Concomitant]
     Active Substance: GABAPENTIN
  2. ROBAXIN [Suspect]
     Active Substance: METHOCARBAMOL
     Indication: PULMONARY ARTERIAL HYPERTENSION
     Route: 048
     Dates: start: 20190801
  3. TRAMADOL. [Concomitant]
     Active Substance: TRAMADOL
  4. ADCIRCA [Concomitant]
     Active Substance: TADALAFIL

REACTIONS (1)
  - Insomnia [None]

NARRATIVE: CASE EVENT DATE: 20190804
